FAERS Safety Report 10210855 (Version 1)
Quarter: 2014Q2

REPORT INFORMATION
  Report Type: Spontaneous
  Country: SE (occurrence: SE)
  Receive Date: 20140602
  Receipt Date: 20140602
  Transmission Date: 20141212
  Serious: Yes (Hospitalization)
  Sender: FDA-Public Use
  Company Number: SE-ENDO PHARMACEUTICALS INC.-AVEE20140059

PATIENT
  Age: 69 Year
  Sex: Male

DRUGS (3)
  1. AVEED [Suspect]
     Indication: HYPOPITUITARISM
     Dosage: UNKNOWN
     Route: 030
     Dates: start: 20140513
  2. HYDROCORTISONE [Concomitant]
     Indication: PRODUCT USED FOR UNKNOWN INDICATION
     Dosage: UNKNOWN
     Route: 065
     Dates: start: 20140513
  3. LEVAXIN [Concomitant]
     Indication: PRODUCT USED FOR UNKNOWN INDICATION
     Dosage: UNKNOWN
     Route: 065
     Dates: start: 20140513

REACTIONS (1)
  - Pulmonary oil microembolism [Recovered/Resolved]
